FAERS Safety Report 4852014-5 (Version None)
Quarter: 2005Q4

REPORT INFORMATION
  Report Type: 
  Country: None (occurrence: None)
  Receive Date: 20051123
  Receipt Date: 20050822
  Transmission Date: 20060501
  Serious: Yes (Other)
  Sender: FDA-Public Use
  Company Number: 217106

PATIENT
  Age: 41 Year
  Sex: Female
  Weight: 115.6 kg

DRUGS (3)
  1. RAPTIVA [Suspect]
     Indication: PSORIASIS
  2. UVB THERAPY (PHOTOTHERAPY UVB) [Concomitant]
  3. ENBREL [Concomitant]

REACTIONS (3)
  - OEDEMA PERIPHERAL [None]
  - PAIN IN EXTREMITY [None]
  - PRURITUS [None]
